FAERS Safety Report 6558497-7 (Version None)
Quarter: 2010Q1

REPORT INFORMATION
  Report Type: 
  Country: None (occurrence: None)
  Receive Date: 20100129
  Receipt Date: 20100121
  Transmission Date: 20100710
  Serious: Yes (Other)
  Sender: FDA-Public Use
  Company Number: RU-JNJFOC-20100107821

PATIENT
  Age: 66 Year
  Sex: Female

DRUGS (3)
  1. TAVANIC [Suspect]
     Indication: DRUG USE FOR UNKNOWN INDICATION
     Route: 042
  2. SPIRONOLACTONE [Concomitant]
     Route: 065
  3. VERAPAMIL HCL [Concomitant]
     Route: 065

REACTIONS (1)
  - BRONCHOSPASM [None]
